FAERS Safety Report 16915024 (Version 1)
Quarter: 2019Q4

REPORT INFORMATION
  Report Type: Spontaneous
  Country: AU (occurrence: AU)
  Receive Date: 20191014
  Receipt Date: 20191014
  Transmission Date: 20200122
  Serious: Yes (Other)
  Sender: FDA-Public Use
  Company Number: AU-BAUSCH-BL-2019-057040

PATIENT
  Age: 57 Year
  Sex: Male

DRUGS (1)
  1. PREDNISOLONE. [Suspect]
     Active Substance: PREDNISOLONE
     Indication: PRODUCT USED FOR UNKNOWN INDICATION
     Route: 065

REACTIONS (22)
  - Adrenal suppression [Unknown]
  - Mobility decreased [Unknown]
  - Intentional product use issue [Unknown]
  - Sepsis [Unknown]
  - Pelvic abscess [Unknown]
  - Pathogen resistance [Unknown]
  - Clostridial infection [Unknown]
  - Gram stain positive [Unknown]
  - Fall [Unknown]
  - Piriformis syndrome [Unknown]
  - Subcutaneous emphysema [Unknown]
  - Swelling [Unknown]
  - Soft tissue necrosis [Unknown]
  - Hypotension [Unknown]
  - Localised infection [Unknown]
  - Escherichia infection [Unknown]
  - Bacillus infection [Unknown]
  - Arthralgia [Unknown]
  - Erythema [Unknown]
  - Inflammatory marker increased [Unknown]
  - Discharge [Unknown]
  - Intentional product misuse [Unknown]
